FAERS Safety Report 4318681-X (Version None)
Quarter: 2004Q1

REPORT INFORMATION
  Report Type: 
  Country: None (occurrence: None)
  Receive Date: 20040315
  Receipt Date: 20040302
  Transmission Date: 20041129
  Serious: Yes (Other)
  Sender: FDA-Public Use
  Company Number: 2003122796

PATIENT
  Sex: Female

DRUGS (1)
  1. NEURONTIN [Suspect]
     Indication: PAIN
     Dosage: 900 MG (TID)
     Dates: start: 20030101, end: 20030101

REACTIONS (3)
  - BREAST CANCER METASTATIC [None]
  - HEPATIC ENZYME INCREASED [None]
  - VOMITING [None]
